FAERS Safety Report 15723126 (Version 1)
Quarter: 2018Q4

REPORT INFORMATION
  Report Type: Spontaneous
  Country: AR (occurrence: AR)
  Receive Date: 20181214
  Receipt Date: 20181214
  Transmission Date: 20190205
  Serious: Yes (Other)
  Sender: FDA-Public Use
  Company Number: AR-PFIZER INC-2018510224

PATIENT
  Age: 70 Year
  Sex: Female

DRUGS (2)
  1. OMEPRAZOLE. [Concomitant]
     Active Substance: OMEPRAZOLE
     Dosage: UNK
  2. IBRANCE [Suspect]
     Active Substance: PALBOCICLIB
     Indication: BREAST CANCER METASTATIC
     Dosage: 125 MG, CYCLIC (DAILY, 3X1 SCHEME)
     Dates: start: 20171124

REACTIONS (20)
  - Hepatitis [Unknown]
  - Dysgeusia [Unknown]
  - Malaise [Unknown]
  - Blood pressure decreased [Unknown]
  - Gastric disorder [Unknown]
  - Asthenia [Unknown]
  - Decreased immune responsiveness [Unknown]
  - Stress [Unknown]
  - Platelet count decreased [Unknown]
  - Red blood cell count decreased [Unknown]
  - Abdominal discomfort [Unknown]
  - Constipation [Unknown]
  - Neck pain [Unknown]
  - Muscular weakness [Unknown]
  - Loss of personal independence in daily activities [Unknown]
  - Panic attack [Unknown]
  - Fall [Unknown]
  - Liver disorder [Unknown]
  - Hordeolum [Unknown]
  - Decreased appetite [Unknown]

NARRATIVE: CASE EVENT DATE: 201811
